FAERS Safety Report 8182917-8 (Version None)
Quarter: 2012Q1

REPORT INFORMATION
  Report Type: 
  Country: None (occurrence: None)
  Receive Date: 20120305
  Receipt Date: 20120220
  Transmission Date: 20120608
  Serious: Yes (Other)
  Sender: FDA-Public Use
  Company Number: 2012SP000641

PATIENT
  Age: 35 Year
  Sex: Female

DRUGS (3)
  1. ALVESCO [Suspect]
     Indication: ASTHMA
     Route: 055
     Dates: start: 20110805, end: 20120102
  2. VENTOLIN [Concomitant]
     Indication: ASTHMA
     Route: 055
  3. IMIGRAN /01044803/ [Concomitant]
     Indication: PRODUCT USED FOR UNKNOWN INDICATION
     Route: 058

REACTIONS (1)
  - DERMATITIS ALLERGIC [None]
